FAERS Safety Report 8316417-9 (Version None)
Quarter: 2012Q2

REPORT INFORMATION
  Report Type: 
  Country: None (occurrence: None)
  Receive Date: 20120425
  Receipt Date: 20120425
  Transmission Date: 20120825
  Serious: Yes (Other)
  Sender: FDA-Public Use
  Company Number: None

PATIENT
  Age: 69 Year
  Sex: Male
  Weight: 81.6475 kg

DRUGS (1)
  1. KETOCONAZOLE [Suspect]
     Indication: FUNGAL INFECTION
     Dosage: 2% 2X DAILY
     Dates: start: 20120308, end: 20120309

REACTIONS (6)
  - PAIN [None]
  - PRURITUS [None]
  - BURNING SENSATION [None]
  - SKIN EXFOLIATION [None]
  - SCAR [None]
  - BLISTER [None]
